FAERS Safety Report 7149033-5 (Version None)
Quarter: 2010Q4

REPORT INFORMATION
  Report Type: 
  Country: None (occurrence: None)
  Receive Date: 20101209
  Receipt Date: 20101129
  Transmission Date: 20110411
  Serious: Yes (Hospitalization)
  Sender: FDA-Public Use
  Company Number: US-ELI_LILLY_AND_COMPANY-US201012001952

PATIENT
  Sex: Male

DRUGS (7)
  1. PRASUGREL HYDROCHLORIDE [Suspect]
     Indication: ACUTE CORONARY SYNDROME
     Dosage: 60 MG, ONCE
     Dates: start: 20101116, end: 20101116
  2. PRASUGREL HYDROCHLORIDE [Suspect]
     Dosage: 10 MG, DAILY (1/D)
     Dates: start: 20101116
  3. ASPIRIN [Concomitant]
     Indication: CORONARY ARTERY DISEASE
     Dosage: 325 MG, DAILY (1/D)
     Route: 048
     Dates: start: 20101116
  4. MEDROL [Concomitant]
     Indication: PNEUMONIA
     Dosage: 1 D/F, OTHER
     Route: 048
     Dates: start: 20101119
  5. AVELOX [Concomitant]
     Indication: PNEUMONIA
     Dosage: 400 MG, DAILY (1/D)
     Route: 048
     Dates: start: 20101118
  6. LOPRESSOR [Concomitant]
     Indication: CORONARY ARTERY DISEASE
     Dosage: 25 MG, 2/D
     Route: 048
     Dates: start: 20101117
  7. ZOCOR [Concomitant]
     Indication: HYPERLIPIDAEMIA
     Dosage: 80 MG, DAILY (1/D)
     Route: 048
     Dates: start: 20101116

REACTIONS (1)
  - LUNG INFILTRATION [None]
